FAERS Safety Report 10648035 (Version 2)
Quarter: 2014Q4

REPORT INFORMATION
  Report Type: Spontaneous
  Country: US (occurrence: US)
  Receive Date: 20141212
  Receipt Date: 20141212
  Transmission Date: 20150529
  Serious: Yes (Hospitalization)
  Sender: FDA-Public Use
  Company Number: US-BRISTOL-MYERS SQUIBB COMPANY-21429089

PATIENT
  Sex: Male

DRUGS (1)
  1. SPRYCEL [Suspect]
     Active Substance: DASATINIB
     Indication: ACUTE LYMPHOCYTIC LEUKAEMIA
     Dosage: TOTAL DAILY DOSE:140MG  TABS
     Route: 048
     Dates: start: 20140801

REACTIONS (8)
  - Decreased appetite [Unknown]
  - Pyrexia [Unknown]
  - White blood cell count decreased [Unknown]
  - Vomiting [Unknown]
  - Dysgeusia [Unknown]
  - Constipation [Unknown]
  - Platelet count decreased [Unknown]
  - Weight decreased [Unknown]
